FAERS Safety Report 9043135 (Version 1)
Quarter: 2013Q1

REPORT INFORMATION
  Report Type: Report from Study
  Country: US (occurrence: US)
  Receive Date: 20130129
  Receipt Date: 20130129
  Transmission Date: 20140127
  Serious: No
  Sender: FDA-Public Use
  Company Number: US-ABBOTT-12P-163-0912508-00

PATIENT
  Sex: Female
  Weight: 89.89 kg

DRUGS (8)
  1. HUMIRA 40 MG/0.8 ML PEN [Suspect]
     Indication: RHEUMATOID ARTHRITIS
     Dates: start: 201112
  2. HUMIRA 40 MG/0.8 ML PEN [Suspect]
     Indication: PSORIATIC ARTHROPATHY
  3. LEVOTHYROXINE [Concomitant]
     Indication: PRODUCT USED FOR UNKNOWN INDICATION
  4. CELEBREX [Concomitant]
     Indication: PRODUCT USED FOR UNKNOWN INDICATION
  5. METHOTREXATE [Concomitant]
     Indication: PRODUCT USED FOR UNKNOWN INDICATION
  6. JANUVIA [Concomitant]
     Indication: DIABETES MELLITUS
  7. LIPITOR [Concomitant]
     Indication: BLOOD CHOLESTEROL
  8. INH [Concomitant]
     Indication: TUBERCULIN TEST POSITIVE
     Dates: start: 201109

REACTIONS (3)
  - Abdominal pain [Not Recovered/Not Resolved]
  - Abdominal pain [Unknown]
  - Gallbladder disorder [Unknown]
